FAERS Safety Report 10343106 (Version 1)
Quarter: 2014Q3

REPORT INFORMATION
  Report Type: Spontaneous
  Country: US (occurrence: US)
  Receive Date: 20140725
  Receipt Date: 20140725
  Transmission Date: 20150326
  Serious: Yes (Hospitalization)
  Sender: FDA-Public Use
  Company Number: US-JNJFOC-20140715444

PATIENT
  Age: 82 Year
  Sex: Male
  Weight: 77 kg

DRUGS (10)
  1. ZOLOFT [Concomitant]
     Active Substance: SERTRALINE HYDROCHLORIDE
  2. IMBRUVICA [Suspect]
     Active Substance: IBRUTINIB
     Indication: MANTLE CELL LYMPHOMA
     Route: 048
     Dates: start: 20131231, end: 20140708
  3. PANTOPRAZOLE [Concomitant]
     Active Substance: PANTOPRAZOLE SODIUM
  4. METOPROLOL [Concomitant]
     Active Substance: METOPROLOL
  5. DIGOXIN. [Concomitant]
     Active Substance: DIGOXIN
  6. ASA [Concomitant]
     Active Substance: ASPIRIN
  7. NEXIUM [Concomitant]
     Active Substance: ESOMEPRAZOLE MAGNESIUM
  8. OXYBUTYNIN [Concomitant]
     Active Substance: OXYBUTYNIN
     Route: 061
  9. METOPROLOL [Concomitant]
     Active Substance: METOPROLOL
  10. TERAZOSIN [Concomitant]
     Active Substance: TERAZOSIN\TERAZOSIN HYDROCHLORIDE

REACTIONS (3)
  - Atrial fibrillation [Unknown]
  - Hip fracture [Unknown]
  - Fall [Unknown]

NARRATIVE: CASE EVENT DATE: 20140521
